FAERS Safety Report 23362815 (Version 2)
Quarter: 2024Q1

REPORT INFORMATION
  Report Type: Spontaneous
  Country: US (occurrence: None)
  Receive Date: 20240103
  Receipt Date: 20240115
  Transmission Date: 20240409
  Serious: No
  Sender: FDA-Public Use
  Company Number: 2023A292867

PATIENT
  Age: 91 Year
  Sex: Male
  Weight: 59.9 kg

DRUGS (1)
  1. BREZTRI [Suspect]
     Active Substance: BUDESONIDE\FORMOTEROL\GLYCOPYRROLATE
     Route: 055

REACTIONS (2)
  - Macular degeneration [Unknown]
  - Device malfunction [Unknown]

NARRATIVE: CASE EVENT DATE: 20231201
